FAERS Safety Report 16472867 (Version 1)
Quarter: 2019Q2

REPORT INFORMATION
  Report Type: Spontaneous
  Country: FR (occurrence: FR)
  Receive Date: 20190625
  Receipt Date: 20190625
  Transmission Date: 20190711
  Serious: Yes (Hospitalization)
  Sender: FDA-Public Use
  Company Number: FR-TEVA-2019-FR-1065395

PATIENT
  Age: 15 Year
  Sex: Female
  Weight: 60 kg

DRUGS (8)
  1. ALPRAZOLAM. [Suspect]
     Active Substance: ALPRAZOLAM
     Indication: SUICIDE ATTEMPT
     Route: 048
     Dates: start: 20190520, end: 20190520
  2. CLOPIDOGREL (CHLORHYDRATE DE) [Suspect]
     Active Substance: CLOPIDOGREL HYDROCHLORIDE
     Indication: SUICIDE ATTEMPT
     Route: 048
     Dates: start: 20190520, end: 20190520
  3. VOGALENE [Suspect]
     Active Substance: METOPIMAZINE
     Indication: SUICIDE ATTEMPT
     Route: 048
     Dates: start: 20190520, end: 20190520
  4. BISOPROLOL (FUMARATE ACIDE DE) [Suspect]
     Active Substance: BISOPROLOL FUMARATE
     Indication: SUICIDE ATTEMPT
     Route: 048
     Dates: start: 20190520, end: 20190520
  5. RAMIPRIL. [Suspect]
     Active Substance: RAMIPRIL
     Indication: SUICIDE ATTEMPT
     Route: 048
     Dates: start: 20190520, end: 20190520
  6. CEFPODOXIME [Suspect]
     Active Substance: CEFPODOXIME
     Indication: SUICIDE ATTEMPT
     Route: 048
     Dates: start: 20190520, end: 20190520
  7. PREVISCAN 20 MG, COMPRIM? S?CABLE [Suspect]
     Active Substance: FLUINDIONE
     Indication: SUICIDE ATTEMPT
     Route: 048
     Dates: start: 20190520, end: 20190520
  8. PANTOPRAZOLE [Suspect]
     Active Substance: PANTOPRAZOLE
     Indication: SUICIDE ATTEMPT
     Route: 048
     Dates: start: 20190520, end: 20190520

REACTIONS (3)
  - Bradycardia [Recovering/Resolving]
  - Prothrombin time shortened [Recovering/Resolving]
  - Rhabdomyolysis [Recovering/Resolving]

NARRATIVE: CASE EVENT DATE: 20190520
